FAERS Safety Report 8416219-9 (Version None)
Quarter: 2012Q2

REPORT INFORMATION
  Report Type: 
  Country: None (occurrence: None)
  Receive Date: 20120606
  Receipt Date: 20120604
  Transmission Date: 20120825
  Serious: No
  Sender: FDA-Public Use
  Company Number: US-ASTRAZENECA-2012SE37193

PATIENT
  Age: 63 Year
  Sex: Male
  Weight: 74.8 kg

DRUGS (4)
  1. ZANTAC [Concomitant]
  2. LOSARTAN [Concomitant]
     Indication: BLOOD PRESSURE ABNORMAL
  3. DEXILANT [Concomitant]
  4. NEXIUM [Suspect]
     Indication: GASTROOESOPHAGEAL REFLUX DISEASE
     Route: 048

REACTIONS (3)
  - OROPHARYNGEAL DISCOMFORT [None]
  - COUGH [None]
  - DRUG DOSE OMISSION [None]
